FAERS Safety Report 4333172-8 (Version None)
Quarter: 2004Q1

REPORT INFORMATION
  Report Type: 
  Country: None (occurrence: None)
  Receive Date: 20040330
  Receipt Date: 20040316
  Transmission Date: 20041129
  Serious: Yes (Congenital Anomaly)
  Sender: FDA-Public Use
  Company Number: 2001SE03668

PATIENT
  Age: 30 Year
  Sex: Female

DRUGS (4)
  1. AMIAS [Suspect]
     Dosage: 4 MG DAILY PO
     Route: 048
     Dates: start: 20000101, end: 20010121
  2. FOLIC ACID [Concomitant]
  3. BENDROFLUAZIDE [Concomitant]
  4. LABETALOL HCL [Concomitant]

REACTIONS (5)
  - ABORTION INDUCED [None]
  - COMPLICATIONS OF MATERNAL EXPOSURE TO THERAPEUTIC DRUGS [None]
  - ENCEPHALOPATHY [None]
  - FOETAL DISORDER [None]
  - MATERNAL DRUGS AFFECTING FOETUS [None]
